FAERS Safety Report 5080464-3 (Version None)
Quarter: 2006Q3

REPORT INFORMATION
  Report Type: 
  Country: None (occurrence: None)
  Receive Date: 20060815
  Receipt Date: 20010927
  Transmission Date: 20061208
  Serious: Yes (Hospitalization)
  Sender: FDA-Public Use
  Company Number: FR-SOLVAY-00201004416

PATIENT
  Age: 32610 Day
  Sex: Female
  Weight: 51 kg

DRUGS (3)
  1. PERINDOPRIL ERBUMINE [Suspect]
     Indication: CORONARY ARTERY DISEASE
     Dosage: DAILY DOSE: 2 DF.
     Route: 048
     Dates: start: 20010104
  2. FUROSEMIDE [Concomitant]
     Indication: ILL-DEFINED DISORDER
     Dosage: DAILY DOSE: UNK. FREQUENCY:UNKNOWN
     Route: 065
     Dates: start: 20010118
  3. RANITIDINE [Concomitant]
     Indication: ILL-DEFINED DISORDER
     Dosage: DAILY DOSE: UNK. FREQUENCY:UNKNOWN
     Route: 065
     Dates: start: 20010105

REACTIONS (1)
  - ATRIAL FIBRILLATION [None]
